FAERS Safety Report 5702834-X (Version None)
Quarter: 2008Q2

REPORT INFORMATION
  Report Type: 
  Country: None (occurrence: None)
  Receive Date: 20080411
  Receipt Date: 20080404
  Transmission Date: 20081010
  Serious: No
  Sender: FDA-Public Use
  Company Number: US-BAXTER-2008BH003409

PATIENT
  Sex: Male
  Weight: 2 kg

DRUGS (1)
  1. HEPARIN SODIUM [Suspect]
     Indication: DRUG EXPOSURE DURING PREGNANCY
     Dosage: DOSE UNIT:UNKNOWN
     Route: 064
     Dates: start: 20070407, end: 20070701

REACTIONS (4)
  - DRUG EXPOSURE DURING PREGNANCY [None]
  - DYSPNOEA [None]
  - HEART RATE INCREASED [None]
  - PREMATURE BABY [None]
